FAERS Safety Report 6257494-9 (Version None)
Quarter: 2009Q3

REPORT INFORMATION
  Report Type: 
  Country: None (occurrence: None)
  Receive Date: 20090706
  Receipt Date: 20090624
  Transmission Date: 20100115
  Serious: Yes (Other)
  Sender: FDA-Public Use
  Company Number: US-GENENTECH-285846

PATIENT
  Age: 36 Year
  Sex: Male

DRUGS (6)
  1. ACTIVASE [Suspect]
     Indication: ATRIAL THROMBOSIS
     Dosage: 100 MG, UNK
     Route: 042
  2. ACTIVASE [Suspect]
     Indication: SEPSIS
  3. HEPARIN [Suspect]
     Indication: ATRIAL THROMBOSIS
     Dosage: UNK
     Route: 042
  4. HEPARIN [Suspect]
     Indication: SEPSIS
  5. VANCOMYCIN [Concomitant]
     Indication: SEPSIS
     Dosage: UNK
  6. LEVOFLOXACIN [Concomitant]
     Indication: SEPSIS
     Dosage: UNK

REACTIONS (2)
  - PLEURITIC PAIN [None]
  - PULMONARY EMBOLISM [None]
